FAERS Safety Report 9187511 (Version 1)
Quarter: 2013Q1

REPORT INFORMATION
  Report Type: Report from Study
  Country: DE (occurrence: DE)
  Receive Date: 20130325
  Receipt Date: 20130325
  Transmission Date: 20140127
  Serious: Yes (Hospitalization)
  Sender: FDA-Public Use
  Company Number: DE-JNJFOC-20130308462

PATIENT
  Age: 60 Year
  Sex: Male
  Weight: 90 kg

DRUGS (3)
  1. REMICADE [Suspect]
     Indication: PSORIASIS
     Dosage: DOSAGE REPORTED AS ^470^
     Route: 042
     Dates: start: 20130108
  2. REMICADE [Suspect]
     Indication: PSORIASIS
     Dosage: DOSAGE REPORTED AS ^470^
     Route: 042
     Dates: start: 20100521
  3. VOTUM [Concomitant]
     Dosage: 20MG/12.5MG TABLET
     Route: 065
     Dates: start: 20130225

REACTIONS (3)
  - Renal failure acute [Recovered/Resolved]
  - Dehydration [Recovered/Resolved]
  - Pneumonia [Recovered/Resolved]
